FAERS Safety Report 17514867 (Version 1)
Quarter: 2020Q1

REPORT INFORMATION
  Report Type: Spontaneous
  Country: ZA (occurrence: ZA)
  Receive Date: 20200309
  Receipt Date: 20200309
  Transmission Date: 20200409
  Serious: Yes (Other)
  Sender: FDA-Public Use
  Company Number: ZA-AMGEN-ZAFSP2018077675

PATIENT
  Age: 70 Year
  Sex: Female
  Weight: 53 kg

DRUGS (11)
  1. ENBREL [Suspect]
     Active Substance: ETANERCEPT
     Indication: RHEUMATOID ARTHRITIS
     Dosage: 50 MILLIGRAM, QWK
     Route: 058
     Dates: start: 201802
  2. TOPRAZ [Concomitant]
     Dosage: 100 MILLIGRAM NOCTE
     Route: 048
  3. B CAL DM [Concomitant]
     Active Substance: CALCIUM\CHOLECALCIFEROL\MAGNESIUM
     Dosage: 2 DOSAGE FORM, QD
     Route: 048
  4. PRITOR [Concomitant]
     Dosage: 80 MILLIGRAM, QD
     Route: 048
  5. COXFLAM [Concomitant]
     Active Substance: MELOXICAM
     Dosage: 7.5 MILLIGRAM, QD PRN
     Route: 048
  6. EUTHYROX [Concomitant]
     Active Substance: LEVOTHYROXINE SODIUM
     Dosage: 100 MICROGRAM, QD
  7. BETMIGA [Concomitant]
     Active Substance: MIRABEGRON
     Dosage: 50 MILLIGRAM
     Route: 048
  8. BONIVA [Concomitant]
     Active Substance: IBANDRONATE SODIUM
     Dosage: 150 MILLIGRAM, QMO
     Route: 048
  9. PLASMOQUINE [Concomitant]
     Active Substance: CHLOROQUINE SULFATE
     Dosage: 200 MILLIGRAM (ALT DAYS)
     Route: 048
  10. SALAZOPYRIN [Concomitant]
     Active Substance: SULFASALAZINE
     Dosage: 1 GRAM, BID
     Route: 048
  11. CALCIFEROL [ERGOCALCIFEROL] [Concomitant]
     Active Substance: ERGOCALCIFEROL
     Dosage: 50000 INTERNATIONAL UNIT, 2 TIMES/WK
     Route: 048

REACTIONS (3)
  - Hypothyroidism [Unknown]
  - Osteoporosis [Unknown]
  - Urinary incontinence [Unknown]
